FAERS Safety Report 9022020 (Version 2)
Quarter: 2013Q1

REPORT INFORMATION
  Report Type: Report from Study
  Country: CA (occurrence: CA)
  Receive Date: 20130118
  Receipt Date: 20130124
  Transmission Date: 20140127
  Serious: Yes (Hospitalization)
  Sender: FDA-Public Use
  Company Number: GB-PFIZER INC-2013012692

PATIENT
  Age: 60 Year
  Sex: Female

DRUGS (13)
  1. DOCETAXEL [Suspect]
     Indication: BREAST CANCER
     Dosage: 134 MG, EVERY 3 WEEKS
     Route: 042
     Dates: start: 20011228, end: 20020320
  2. CISPLATIN [Suspect]
     Indication: BREAST CANCER
     Dosage: 134 MG, ONCE EVERY THREE WEEKS
     Route: 042
     Dates: start: 20011228, end: 20020206
  3. CARBOPLATIN [Suspect]
     Indication: BREAST CANCER
     Dosage: 549 MG, EVERY 3 WEEKS
     Route: 042
     Dates: start: 20020227, end: 20020227
  4. CARBOPLATIN [Suspect]
     Dosage: 564 MG, EVERY 3 WEEKS
     Route: 042
     Dates: start: 20020320
  5. TRASTUZUMAB [Suspect]
     Indication: BREAST CANCER
     Dosage: 292 MG, ONCE
     Route: 042
     Dates: start: 20011227, end: 20011227
  6. TRASTUZUMAB [Suspect]
     Dosage: 146 MG, WEEKLY
     Route: 042
     Dates: start: 200201
  7. TRASTUZUMAB [Suspect]
     Dosage: UNK
     Dates: start: 20020320
  8. TRASTUZUMAB [Suspect]
     Dosage: 146 MG, UNK
     Route: 042
     Dates: start: 20020327
  9. TRASTUZUMAB [Suspect]
     Dosage: UNK
     Dates: start: 20020403
  10. ZOCOR [Concomitant]
     Dosage: UNK
  11. ZOLOFT [Concomitant]
     Dosage: UNK
  12. HYDROCHLOROTHIAZIDE [Concomitant]
  13. BENALAPRIL [Concomitant]
     Dosage: UNK

REACTIONS (2)
  - Febrile neutropenia [Recovered/Resolved]
  - Nervous system disorder [Recovered/Resolved with Sequelae]
